FAERS Safety Report 17037570 (Version 1)
Quarter: 2019Q4

REPORT INFORMATION
  Report Type: Spontaneous
  Country: US (occurrence: US)
  Receive Date: 20191016
  Receipt Date: 20191016
  Transmission Date: 20200122
  Serious: No
  Sender: FDA-Public Use
  Company Number: None

PATIENT
  Age: 65 Year
  Sex: Male

DRUGS (1)
  1. HUMIRA [Suspect]
     Active Substance: ADALIMUMAB
     Indication: PSORIASIS
     Dosage: ?          OTHER FREQUENCY:EVERY 14 DAYS;?
     Route: 058
     Dates: start: 20190723

REACTIONS (5)
  - Pruritus [None]
  - Pain of skin [None]
  - Skin disorder [None]
  - Skin exfoliation [None]
  - Product formulation issue [None]

NARRATIVE: CASE EVENT DATE: 20191001
